FAERS Safety Report 10535286 (Version 3)
Quarter: 2015Q1

REPORT INFORMATION
  Report Type: Spontaneous
  Country: JP (occurrence: JP)
  Receive Date: 20141022
  Receipt Date: 20150313
  Transmission Date: 20150720
  Serious: Yes (Hospitalization, Other)
  Sender: FDA-Public Use
  Company Number: JP-GLAXOSMITHKLINE-JP2014JPN009703

PATIENT
  Age: 83 Year
  Sex: Female
  Weight: 38 kg

DRUGS (13)
  1. TYKERB [Suspect]
     Active Substance: LAPATINIB DITOSYLATE
     Indication: BREAST CANCER
     Dosage: 1250 MG, UNK
     Route: 048
     Dates: start: 20141001, end: 20141015
  2. TENORMIN [Concomitant]
     Active Substance: ATENOLOL
     Dosage: UNK
     Dates: end: 20141015
  3. BIOFERMIN [Concomitant]
     Active Substance: BACILLUS SUBTILIS\LACTOBACILLUS ACIDOPHILUS\STREPTOCOCCUS FAECAIS
     Dosage: UNK
     Dates: end: 20141015
  4. ZANTAC [Suspect]
     Active Substance: RANITIDINE HYDROCHLORIDE
     Route: 065
  5. AMLODIPINE [Concomitant]
     Active Substance: AMLODIPINE BESYLATE
     Dosage: UNK
     Dates: end: 20141015
  6. SULFAMETHOXAZOLE AND TRIMETHOPRIM [Concomitant]
     Active Substance: SULFAMETHOXAZOLE\TRIMETHOPRIM
     Dosage: UNK
     Dates: start: 20141002, end: 20141015
  7. XELODA [Suspect]
     Active Substance: CAPECITABINE
     Indication: BREAST CANCER
     Dosage: 1800 MG, UNK
     Route: 048
     Dates: start: 20141001, end: 20141006
  8. SOKEIKAKKETSUTO [Concomitant]
     Dosage: UNK
     Dates: end: 20141005
  9. XELODA [Suspect]
     Active Substance: CAPECITABINE
     Dosage: 1200 MG, UNK
     Route: 048
     Dates: start: 20141006, end: 20141014
  10. PRAVASTATIN NA [Concomitant]
     Dosage: UNK
     Dates: end: 20141015
  11. NEUROVITAN [Concomitant]
     Active Substance: VITAMINS
     Dosage: UNK
     Dates: end: 20141015
  12. DECADRON [Suspect]
     Active Substance: DEXAMETHASONE
     Indication: BRAIN OEDEMA
     Dosage: UNK
     Route: 048
     Dates: start: 20140918, end: 20141015
  13. CHINESE MEDICINE [Concomitant]
     Active Substance: UNSPECIFIED INGREDIENT
     Indication: PROPHYLAXIS AGAINST DIARRHOEA
     Dosage: UNK
     Dates: start: 20141004, end: 20141005

REACTIONS (10)
  - Nausea [Unknown]
  - Pruritus [Unknown]
  - Vomiting [Unknown]
  - Sneezing [Unknown]
  - Blood pressure decreased [Unknown]
  - Abdominal pain [Unknown]
  - Constipation [Unknown]
  - Rash [Unknown]
  - Gastric perforation [Recovered/Resolved]
  - Vomiting [Unknown]

NARRATIVE: CASE EVENT DATE: 20141002
